FAERS Safety Report 20747403 (Version 2)
Quarter: 2023Q1

REPORT INFORMATION
  Report Type: Spontaneous
  Country: US (occurrence: US)
  Receive Date: 20220425
  Receipt Date: 20230318
  Transmission Date: 20230418
  Serious: No
  Sender: FDA-Public Use
  Company Number: US-SA-SAC20220420001728

PATIENT
  Age: 89 Year
  Sex: Male

DRUGS (8)
  1. DUPIXENT [Suspect]
     Active Substance: DUPILUMAB
     Indication: Dermatitis atopic
     Dosage: 300 MG, QOW
     Route: 058
     Dates: start: 20210317
  2. RISPERIDONE [Concomitant]
     Active Substance: RISPERIDONE
     Dosage: UNK
  3. TRIAMCINOLONE [Concomitant]
     Active Substance: TRIAMCINOLONE
     Dosage: UNK
  4. CITALOPRAM [Concomitant]
     Active Substance: CITALOPRAM HYDROBROMIDE
     Dosage: UNK
  5. MIDODRINE [Concomitant]
     Active Substance: MIDODRINE
     Dosage: UNK
  6. DONEPEZIL [Concomitant]
     Active Substance: DONEPEZIL
     Dosage: UNK
  7. MEMANTINE [Concomitant]
     Active Substance: MEMANTINE
     Dosage: UNK
  8. LEVETIRACETAM [Concomitant]
     Active Substance: LEVETIRACETAM
     Dosage: UNK

REACTIONS (2)
  - Influenza like illness [Unknown]
  - Product dose omission issue [Unknown]
